FAERS Safety Report 11703994 (Version 1)
Quarter: 2015Q4

REPORT INFORMATION
  Report Type: Spontaneous
  Country: US (occurrence: None)
  Receive Date: 20151105
  Receipt Date: 20151105
  Transmission Date: 20160304
  Serious: Yes (Disabling)
  Sender: FDA-Public Use
  Company Number: None

PATIENT
  Age: 51 Year
  Sex: Female
  Weight: 79.38 kg

DRUGS (10)
  1. CIPROFLOXACIN 500 MG ? [Suspect]
     Active Substance: CIPROFLOXACIN
     Indication: URINARY TRACT INFECTION
     Dosage: 1 PILL TWICE DAILY TAKEN BY MOUTH
     Route: 048
     Dates: start: 20150115, end: 20150122
  2. METFORMIN [Concomitant]
     Active Substance: METFORMIN HYDROCHLORIDE
  3. LEVOTHYROXINE. [Concomitant]
     Active Substance: LEVOTHYROXINE
  4. LISINOPRIL. [Concomitant]
     Active Substance: LISINOPRIL
  5. VITAMIN D [Concomitant]
     Active Substance: CHOLECALCIFEROL
  6. VIVELLE-DOT [Concomitant]
     Active Substance: ESTRADIOL
  7. MAGNESIUM [Concomitant]
     Active Substance: MAGNESIUM
  8. OMEPRAZOLE. [Concomitant]
     Active Substance: OMEPRAZOLE
  9. METOPROLOL [Concomitant]
     Active Substance: METOPROLOL
  10. LATANOPROST. [Concomitant]
     Active Substance: LATANOPROST

REACTIONS (26)
  - Alopecia [None]
  - Blepharospasm [None]
  - Nausea [None]
  - Hormone level abnormal [None]
  - Dry skin [None]
  - Muscular weakness [None]
  - Arthropathy [None]
  - Urinary incontinence [None]
  - Burning sensation [None]
  - Vision blurred [None]
  - Muscle twitching [None]
  - Tinnitus [None]
  - Migraine [None]
  - Paraesthesia [None]
  - Vitreous floaters [None]
  - Bladder pain [None]
  - Muscle spasms [None]
  - Diarrhoea [None]
  - Sensory disturbance [None]
  - Arthralgia [None]
  - Gait disturbance [None]
  - Musculoskeletal pain [None]
  - Back pain [None]
  - Tendon pain [None]
  - Activities of daily living impaired [None]
  - Abdominal pain upper [None]

NARRATIVE: CASE EVENT DATE: 20150115
